FAERS Safety Report 23764326 (Version 2)
Quarter: 2024Q2

REPORT INFORMATION
  Report Type: Spontaneous
  Country: US (occurrence: US)
  Receive Date: 20240420
  Receipt Date: 20240502
  Transmission Date: 20240716
  Serious: No
  Sender: FDA-Public Use
  Company Number: US-HALEON-2167696

PATIENT

DRUGS (1)
  1. TUMS EXTRA STRENGTH, SMOOTHIES [Suspect]
     Active Substance: CALCIUM CARBONATE
     Indication: Product used for unknown indication
     Dosage: EXPDATE:20250831EXPDATE:20250831

REACTIONS (3)
  - Product package associated injury [Unknown]
  - Wrong technique in product usage process [Unknown]
  - Product quality issue [Unknown]
